FAERS Safety Report 16841256 (Version 2)
Quarter: 2019Q4

REPORT INFORMATION
  Report Type: Spontaneous
  Country: PT (occurrence: PT)
  Receive Date: 20190923
  Receipt Date: 20191227
  Transmission Date: 20200122
  Serious: Yes (Other)
  Sender: FDA-Public Use
  Company Number: PT-MYLANLABS-2019M1088705

PATIENT
  Age: 75 Year
  Sex: Male

DRUGS (4)
  1. LERCANIDIPINE [Suspect]
     Active Substance: LERCANIDIPINE
     Indication: HYPERTENSION
     Dosage: UNK
  2. HYDROCHLOROTHIAZIDE. [Suspect]
     Active Substance: HYDROCHLOROTHIAZIDE
     Indication: HYPERTENSION
     Dosage: UNK
  3. INDAPAMIDE. [Suspect]
     Active Substance: INDAPAMIDE
     Indication: HYPERTENSION
     Dosage: UNK
  4. MICARDIS [Suspect]
     Active Substance: TELMISARTAN
     Indication: HYPERTENSION
     Dosage: UNK

REACTIONS (9)
  - Proteinuria [Unknown]
  - Aortic arteriosclerosis [Unknown]
  - Renal artery restenosis [Unknown]
  - Left ventricular hypertrophy [Unknown]
  - Chronic kidney disease [Unknown]
  - Drug ineffective [Unknown]
  - Renal artery arteriosclerosis [Unknown]
  - Hypertensive nephropathy [Unknown]
  - Hypertension [Unknown]
